FAERS Safety Report 20842790 (Version 1)
Quarter: 2022Q2

REPORT INFORMATION
  Report Type: Spontaneous
  Country: US (occurrence: US)
  Receive Date: 20220518
  Receipt Date: 20220518
  Transmission Date: 20220721
  Serious: No
  Sender: FDA-Public Use
  Company Number: ENDG22-02394

PATIENT
  Sex: Female

DRUGS (3)
  1. BOSENTAN [Suspect]
     Active Substance: BOSENTAN
     Indication: Pulmonary arterial hypertension
     Dosage: 125 MG, BID
     Route: 048
     Dates: start: 20211116
  2. UPTRAVI [Suspect]
     Active Substance: SELEXIPAG
     Indication: Product used for unknown indication
     Dosage: UNK UNKNOWN, UNKNOWN
     Route: 065
  3. UPTRAVI [Suspect]
     Active Substance: SELEXIPAG
     Dosage: UNK UNKNOWN, UNKNOWN (DOSE INCREASE)
     Route: 065

REACTIONS (1)
  - Flushing [Recovered/Resolved]

NARRATIVE: CASE EVENT DATE: 20220101
